FAERS Safety Report 6923977-9 (Version None)
Quarter: 2010Q3

REPORT INFORMATION
  Report Type: 
  Country: None (occurrence: None)
  Receive Date: 20100813
  Receipt Date: 20100805
  Transmission Date: 20110219
  Serious: Yes (Hospitalization)
  Sender: FDA-Public Use
  Company Number: US-ELI_LILLY_AND_COMPANY-US201008002269

PATIENT
  Sex: Female
  Weight: 78.458 kg

DRUGS (11)
  1. BYETTA [Suspect]
     Indication: TYPE 2 DIABETES MELLITUS
     Dosage: 5 UG, 2/D
     Route: 058
  2. BYETTA [Suspect]
     Dosage: 10 UG, 2/D
     Route: 058
  3. BYETTA [Suspect]
     Dosage: 10 UG, 2/D
     Route: 058
  4. METFORMIN HCL [Concomitant]
     Indication: TYPE 2 DIABETES MELLITUS
     Dosage: 1000 D/F, 2/D
     Route: 048
  5. XANAX [Concomitant]
     Dosage: UNK, 2/D
     Route: 048
  6. LEVOTHYROXINE [Concomitant]
     Dosage: UNK, DAILY (1/D)
     Route: 048
  7. ACTOS [Concomitant]
     Indication: TYPE 2 DIABETES MELLITUS
     Dosage: UNK, DAILY (1/D)
     Route: 048
  8. DIOVAN [Concomitant]
     Dosage: UNK, DAILY (1/D)
     Route: 048
  9. SIMVASTATIN [Concomitant]
     Dosage: UNK, DAILY (1/D)
     Route: 048
  10. LEXAPRO [Concomitant]
     Dosage: UNK, DAILY (1/D)
     Route: 048
  11. GLUCOSAMINE CHONDROITIN [Concomitant]
     Dosage: UNK, DAILY (1/D)
     Route: 048

REACTIONS (6)
  - BACK PAIN [None]
  - BLOOD GLUCOSE ABNORMAL [None]
  - FAECALOMA [None]
  - MOBILITY DECREASED [None]
  - URINARY TRACT INFECTION [None]
  - WEIGHT DECREASED [None]
